FAERS Safety Report 9684629 (Version 1)
Quarter: 2013Q4

REPORT INFORMATION
  Report Type: Spontaneous
  Country: US (occurrence: US)
  Receive Date: 20131112
  Receipt Date: 20131112
  Transmission Date: 20140711
  Serious: No
  Sender: FDA-Public Use
  Company Number: US-009507513-1310USA012552

PATIENT
  Sex: 0

DRUGS (1)
  1. ISENTRESS CHEWABLE TABLETS [Suspect]
     Dosage: UNK

REACTIONS (3)
  - Gastrointestinal tube insertion [Unknown]
  - Wrong technique in drug usage process [Unknown]
  - Incorrect route of drug administration [Unknown]
